FAERS Safety Report 5739714-X (Version None)
Quarter: 2008Q2

REPORT INFORMATION
  Report Type: 
  Country: None (occurrence: None)
  Receive Date: 20080513
  Receipt Date: 20080428
  Transmission Date: 20081010
  Serious: Yes (Life-Threatening, Hospitalization)
  Sender: FDA-Public Use
  Company Number: 6042674

PATIENT
  Age: 67 Year
  Sex: Female

DRUGS (40)
  1. BISOPROLOL FUMARATE [Suspect]
     Indication: DRUG USE FOR UNKNOWN INDICATION
     Dosage: ORAL
     Route: 048
     Dates: start: 20071012, end: 20071019
  2. BACTROBAN [Suspect]
     Indication: DRUG USE FOR UNKNOWN INDICATION
     Dates: start: 20071001, end: 20071005
  3. VANCOMYCIN [Suspect]
     Indication: DRUG USE FOR UNKNOWN INDICATION
     Dates: start: 20071012, end: 20071018
  4. OMEPRAZOLE [Suspect]
     Indication: DRUG USE FOR UNKNOWN INDICATION
     Dates: start: 20071014, end: 20071015
  5. ACETAMINOPHEN W/ CODEINE [Suspect]
     Indication: DRUG USE FOR UNKNOWN INDICATION
     Dates: start: 20071016, end: 20071021
  6. NORMISON (TEMAZEPAM) [Suspect]
     Indication: DRUG USE FOR UNKNOWN INDICATION
     Dates: start: 20071005, end: 20071005
  7. ARIXTRA [Suspect]
     Indication: DRUG USE FOR UNKNOWN INDICATION
     Dates: start: 20071006, end: 20071006
  8. AMILORIDE + FUROSEMIDE(FUROSEMIDE, AMILORIDE HYDROCHLORIDE) [Suspect]
     Indication: DRUG USE FOR UNKNOWN INDICATION
     Dates: start: 20071011, end: 20071019
  9. CHLORPHENIRAMINE MALEATE [Suspect]
     Indication: DRUG USE FOR UNKNOWN INDICATION
     Dates: start: 20071018, end: 20071019
  10. RANITIDINE [Suspect]
     Indication: DRUG USE FOR UNKNOWN INDICATION
     Dates: start: 20071019, end: 20071021
  11. IMMUNOGLOEULIN (IMMUNOGLOBULIN) [Suspect]
     Indication: DRUG USE FOR UNKNOWN INDICATION
     Dates: start: 20071022, end: 20071023
  12. DICLOFENAC SODIUM [Suspect]
     Indication: DRUG USE FOR UNKNOWN INDICATION
     Dates: start: 20071003, end: 20071005
  13. DICLOFENAC SODIUM [Suspect]
     Indication: DRUG USE FOR UNKNOWN INDICATION
     Dates: start: 20070928
  14. DICLOFENAC SODIUM [Suspect]
     Indication: DRUG USE FOR UNKNOWN INDICATION
     Dates: start: 20070930
  15. ZINACEF [Suspect]
     Indication: DRUG USE FOR UNKNOWN INDICATION
     Dates: start: 20071006, end: 20071007
  16. ACETAMINOPHEN [Suspect]
     Indication: DRUG USE FOR UNKNOWN INDICATION
     Dates: start: 20071016, end: 20071021
  17. ACETAMINOPHEN [Suspect]
     Indication: DRUG USE FOR UNKNOWN INDICATION
     Dates: start: 20071005
  18. MORPHINE [Suspect]
     Indication: DRUG USE FOR UNKNOWN INDICATION
     Dates: start: 20071005, end: 20071006
  19. TRAMADOL HCL [Suspect]
     Indication: DRUG USE FOR UNKNOWN INDICATION
     Dates: start: 20071006, end: 20071006
  20. FUROSEMIDE [Suspect]
     Indication: DRUG USE FOR UNKNOWN INDICATION
     Dates: start: 20071006, end: 20071006
  21. COMBIVENT(SALBUTAMOL, IPRATROPIUM BROMIDE) [Concomitant]
  22. LIPITOR [Concomitant]
  23. DIOVAN HCT [Concomitant]
  24. CARDURA [Concomitant]
  25. SERETIDE (FLUTICASONE PROPIONATE, SALMETEROL XINAFOATE) [Concomitant]
  26. CHLORHEXIDINE (CHLORHEXIDINE GLUCONATE) [Concomitant]
  27. ACETYLCYSTEINE [Concomitant]
  28. CIPROFLOXACIN [Concomitant]
  29. ASPIRIN [Concomitant]
  30. ENOXAPARIN SODIUM [Concomitant]
  31. GLYCERYL TRINITRATE (GLYCERYL TRINITRATE) [Concomitant]
  32. LACTULOSE [Concomitant]
  33. AZACTAM [Concomitant]
  34. MOXIFLOXACIN HCL [Concomitant]
  35. CETIRIZINE HCL [Concomitant]
  36. FRESUBIN (VITAMINS NOS, MINERALS NOS, CARBOHYDRATES NOS, PROTEINS NOS, [Concomitant]
  37. PARAFFIN (PARAFFIN) [Concomitant]
  38. SENOKOT(SENNA ALEXANDRINA) [Concomitant]
  39. ONDANSETRON HCL [Concomitant]
  40. RED BLOOD CELLS [Concomitant]

REACTIONS (2)
  - RASH [None]
  - TOXIC EPIDERMAL NECROLYSIS [None]
